FAERS Safety Report 8266042-3 (Version None)
Quarter: 2012Q2

REPORT INFORMATION
  Report Type: 
  Country: None (occurrence: None)
  Receive Date: 20120406
  Receipt Date: 20120330
  Transmission Date: 20120825
  Serious: Yes (Hospitalization, Other)
  Sender: FDA-Public Use
  Company Number: US-ASTRAZENECA-2011SE66537

PATIENT
  Age: 54 Year
  Sex: Male

DRUGS (10)
  1. VANDETANIB [Suspect]
     Route: 048
  2. ASPRIN LOW DOSE [Concomitant]
     Route: 048
  3. GLIPIZIDE [Concomitant]
     Route: 048
  4. VITAMIN D [Concomitant]
     Route: 048
  5. SYNTHROID [Concomitant]
     Route: 048
  6. VANDETANIB [Suspect]
     Indication: THYROID CANCER
     Route: 048
     Dates: start: 20111024, end: 20120112
  7. NITROGLYCERIN [Concomitant]
  8. VYTORIN [Concomitant]
     Dosage: 10-40 DAILY
     Route: 048
  9. ACEBUTOLOL HCL [Concomitant]
     Route: 048
  10. PLAVIX [Concomitant]
     Route: 048

REACTIONS (8)
  - ELECTROCARDIOGRAM QT PROLONGED [None]
  - FEELING HOT [None]
  - DYSPNOEA [None]
  - NAUSEA [None]
  - PENILE PAIN [None]
  - BLOOD PRESSURE INCREASED [None]
  - FATIGUE [None]
  - DECREASED APPETITE [None]
